FAERS Safety Report 5394599-9 (Version None)
Quarter: 2007Q3

REPORT INFORMATION
  Report Type: 
  Country: None (occurrence: None)
  Receive Date: 20070723
  Receipt Date: 20070713
  Transmission Date: 20080115
  Serious: Yes (Other)
  Sender: FDA-Public Use
  Company Number: GR-ABBOTT-07P-066-0374545-00

PATIENT
  Age: 33 Year
  Sex: Female

DRUGS (4)
  1. KALETRA [Suspect]
     Indication: SYSTEMIC ANTIVIRAL TREATMENT
     Route: 048
     Dates: start: 20020604
  2. TENOFOVIR DISOPROXIL FUMARATE [Suspect]
     Indication: SYSTEMIC ANTIVIRAL TREATMENT
     Route: 048
     Dates: start: 20040817
  3. DIDANOSINE [Suspect]
     Indication: SYSTEMIC ANTIVIRAL TREATMENT
     Route: 048
     Dates: start: 20040817
  4. ENFUVIRTIDE [Suspect]
     Indication: SYSTEMIC ANTIVIRAL TREATMENT
     Route: 058
     Dates: start: 20040817

REACTIONS (1)
  - ABORTION INDUCED [None]
